FAERS Safety Report 8369793-5 (Version None)
Quarter: 2012Q1

REPORT INFORMATION
  Report Type: 
  Country: None (occurrence: None)
  Receive Date: 20120323
  Receipt Date: 20110308
  Transmission Date: 20120608
  Serious: Yes (Hospitalization, Other)
  Sender: FDA-Public Use
  Company Number: 163-21880-11012173

PATIENT
  Age: 74 Year
  Sex: Female
  Weight: 62.5964 kg

DRUGS (18)
  1. REVLIMID [Suspect]
     Indication: MULTIPLE MYELOMA
     Dosage: 25 MG, DAILY X 3 WEEKS; 1 WEEK OFF, PO
     Route: 048
     Dates: start: 20101216
  2. ZOLPIDEM TARTRATE [Concomitant]
  3. RENVELA [Concomitant]
  4. XANAX [Concomitant]
  5. MEGESTROL ACETATE [Concomitant]
  6. VERAPAMIL HYDROCHLORIDE [Concomitant]
  7. HYDROCODONE-ACETAMINOPHEN (REMEDEINE) [Concomitant]
  8. OMEPRAZOLE [Concomitant]
  9. TRAMADOL HCL [Concomitant]
  10. KLOR-CON 10 (POTASSIUM CHLORIDE) [Concomitant]
  11. ALKERAN [Concomitant]
  12. TRAZODONE HCL [Concomitant]
  13. METOPROLOL TARTRATE [Concomitant]
  14. LEVOTHYROXINE SODIUM [Concomitant]
  15. FUROSEMIDE [Concomitant]
  16. GEMFIBROZIL [Concomitant]
  17. WARFARIN SODIUM [Concomitant]
  18. SPIRIVA [Concomitant]

REACTIONS (5)
  - OEDEMA PERIPHERAL [None]
  - PLEURAL EFFUSION [None]
  - HAEMOGLOBIN DECREASED [None]
  - SWELLING FACE [None]
  - PLATELET COUNT DECREASED [None]
